FAERS Safety Report 8917305 (Version 1)
Quarter: 2012Q4

REPORT INFORMATION
  Report Type: 
  Country: US (occurrence: US)
  Receive Date: 20121120
  Receipt Date: 20121120
  Transmission Date: 20130627
  Serious: Yes (Other)
  Sender: FDA-Public Use
  Company Number: US-ELI_LILLY_AND_COMPANY-US201211003247

PATIENT
  Sex: Female

DRUGS (5)
  1. CYMBALTA [Suspect]
     Indication: DEPRESSION
     Dosage: 60 mg, qd
  2. COREG [Concomitant]
     Indication: CARDIAC FAILURE CONGESTIVE
     Dosage: 25 mg, bid
  3. LASIX [Concomitant]
  4. WARFARIN [Concomitant]
     Dosage: 7 mg, UNK
  5. XANAX [Concomitant]

REACTIONS (23)
  - Pulmonary oedema [Unknown]
  - Cardiac pacemaker battery replacement [Recovered/Resolved]
  - Implantable defibrillator insertion [Unknown]
  - Suicidal ideation [Unknown]
  - Abdominal distension [Unknown]
  - Pain [Not Recovered/Not Resolved]
  - Chromaturia [Unknown]
  - Pollakiuria [Unknown]
  - Breast swelling [Unknown]
  - Weight increased [Unknown]
  - Mood altered [Unknown]
  - Anger [Unknown]
  - Restlessness [Unknown]
  - Irritability [Unknown]
  - Aggression [Unknown]
  - Logorrhoea [Unknown]
  - Sleep disorder [Unknown]
  - Bruxism [Unknown]
  - Tachyphrenia [Unknown]
  - Headache [Unknown]
  - Anxiety [Unknown]
  - Blood disorder [Unknown]
  - Visual impairment [Unknown]
